FAERS Safety Report 14753072 (Version 2)
Quarter: 2018Q2

REPORT INFORMATION
  Report Type: Spontaneous
  Country: US (occurrence: US)
  Receive Date: 20180412
  Receipt Date: 20180423
  Transmission Date: 20180711
  Serious: No
  Sender: FDA-Public Use
  Company Number: US-MYLANLABS-2018M1018298

PATIENT
  Sex: Female

DRUGS (6)
  1. MUCINEX [Concomitant]
     Active Substance: GUAIFENESIN
     Indication: SINUSITIS
     Dosage: UNK UNK, QD
  2. LEVAQUIN [Suspect]
     Active Substance: LEVOFLOXACIN
     Indication: PRODUCT USED FOR UNKNOWN INDICATION
     Dosage: UNK
     Dates: start: 2010
  3. MUCINEX [Concomitant]
     Active Substance: GUAIFENESIN
     Indication: BRONCHITIS
  4. NAPROXEN. [Concomitant]
     Active Substance: NAPROXEN
     Indication: SINUSITIS
     Dosage: 500 MG, QD
  5. CIPROFLOXACIN. [Suspect]
     Active Substance: CIPROFLOXACIN
     Indication: PRODUCT USED FOR UNKNOWN INDICATION
     Dosage: UNK
     Dates: start: 2010
  6. NAPROXEN. [Concomitant]
     Active Substance: NAPROXEN
     Indication: BRONCHITIS

REACTIONS (2)
  - Periarthritis [Unknown]
  - Tendon pain [Unknown]

NARRATIVE: CASE EVENT DATE: 2010
